FAERS Safety Report 10015888 (Version 1)
Quarter: 2014Q1

REPORT INFORMATION
  Report Type: Spontaneous
  Country: JP (occurrence: JP)
  Receive Date: 20140317
  Receipt Date: 20140317
  Transmission Date: 20141002
  Serious: Yes (Other)
  Sender: FDA-Public Use
  Company Number: JP-GLAXOSMITHKLINE-B0976565A

PATIENT
  Sex: Male

DRUGS (1)
  1. SERETIDE [Suspect]
     Indication: INTERSTITIAL LUNG DISEASE
     Route: 055

REACTIONS (2)
  - Laryngeal injury [Unknown]
  - Oropharyngeal pain [Unknown]
